FAERS Safety Report 5700656-7 (Version None)
Quarter: 2008Q2

REPORT INFORMATION
  Report Type: 
  Country: None (occurrence: None)
  Receive Date: 20080409
  Receipt Date: 20080409
  Transmission Date: 20081010
  Serious: Yes (Other)
  Sender: FDA-Public Use
  Company Number: None

PATIENT
  Age: 49 Year
  Sex: Female
  Weight: 140 kg

DRUGS (1)
  1. SILVER SULFADIAZINE [Suspect]
     Indication: WOUND
     Dosage: 1 APPLICATION TO PAD 6 TIMES DAILY TOP
     Route: 061
     Dates: start: 20080401, end: 20080402

REACTIONS (9)
  - BLISTER [None]
  - DOCUMENTED HYPERSENSITIVITY TO ADMINISTERED DRUG [None]
  - DYSARTHRIA [None]
  - DYSPHAGIA [None]
  - LIP SWELLING [None]
  - OEDEMA MOUTH [None]
  - PHARYNGEAL OEDEMA [None]
  - PROCEDURAL SITE REACTION [None]
  - SWOLLEN TONGUE [None]
